FAERS Safety Report 19846911 (Version 1)
Quarter: 2021Q3

REPORT INFORMATION
  Report Type: Spontaneous
  Country: US (occurrence: US)
  Receive Date: 20210917
  Receipt Date: 20210917
  Transmission Date: 20211014
  Serious: Yes (Hospitalization, Other)
  Sender: FDA-Public Use
  Company Number: US-SLATE RUN PHARMACEUTICALS-21US000676

PATIENT

DRUGS (10)
  1. OTHER THERAPEUTIC PRODUCTS [Concomitant]
     Active Substance: UNSPECIFIED INGREDIENT
     Indication: POSTURAL ORTHOSTATIC TACHYCARDIA SYNDROME
     Route: 042
  2. DOFETILIDE. [Concomitant]
     Active Substance: DOFETILIDE
     Indication: POSTURAL ORTHOSTATIC TACHYCARDIA SYNDROME
  3. BUPROPION HYDROCHLORIDE EXTENDED RELEASE USP (XL) [Suspect]
     Active Substance: BUPROPION HYDROCHLORIDE
     Indication: POSTURAL ORTHOSTATIC TACHYCARDIA SYNDROME
     Dosage: UNK
  4. FLORINEF ACETATE [Suspect]
     Active Substance: FLUDROCORTISONE ACETATE
     Indication: POSTURAL ORTHOSTATIC TACHYCARDIA SYNDROME
  5. DROXIDOPA [Suspect]
     Active Substance: DROXIDOPA
     Indication: POSTURAL ORTHOSTATIC TACHYCARDIA SYNDROME
  6. ANTICHOLINERGICS [Suspect]
     Active Substance: UNSPECIFIED INGREDIENT
     Indication: POSTURAL ORTHOSTATIC TACHYCARDIA SYNDROME
  7. MIDODRINE [Suspect]
     Active Substance: MIDODRINE
     Indication: POSTURAL ORTHOSTATIC TACHYCARDIA SYNDROME
     Dosage: UNK
  8. IVABRADINE [Concomitant]
     Active Substance: IVABRADINE
     Indication: POSTURAL ORTHOSTATIC TACHYCARDIA SYNDROME
  9. MODAFINIL. [Concomitant]
     Active Substance: MODAFINIL
     Indication: POSTURAL ORTHOSTATIC TACHYCARDIA SYNDROME
  10. NEBIVOLOL. [Concomitant]
     Active Substance: NEBIVOLOL
     Indication: POSTURAL ORTHOSTATIC TACHYCARDIA SYNDROME

REACTIONS (5)
  - Sinus bradycardia [Recovering/Resolving]
  - Sinus node dysfunction [Recovering/Resolving]
  - Therapy non-responder [Unknown]
  - Off label use [Unknown]
  - Postural orthostatic tachycardia syndrome [Recovering/Resolving]
